FAERS Safety Report 8289404-7 (Version None)
Quarter: 2012Q2

REPORT INFORMATION
  Report Type: 
  Country: None (occurrence: None)
  Receive Date: 20120417
  Receipt Date: 20120413
  Transmission Date: 20120825
  Serious: Yes (Life-Threatening, Hospitalization)
  Sender: FDA-Public Use
  Company Number: GB-PFIZER INC-2012092111

PATIENT
  Age: 94 Year
  Sex: Male

DRUGS (18)
  1. CALCIUM CARBONATE [Concomitant]
     Dosage: 1 DF, 2X/DAY
  2. FUROSEMIDE [Concomitant]
     Dosage: 20 MG, 1X/DAY
  3. PARACETAMOL [Concomitant]
     Dosage: UNK
  4. BENZYLPENICILLIN [Concomitant]
     Dosage: 2 DF, UNK
     Route: 042
     Dates: start: 20120319, end: 20120320
  5. CLARITHROMYCIN [Concomitant]
     Dosage: 2 DF, UNK
     Route: 042
     Dates: start: 20120319, end: 20120320
  6. GENTAMICIN [Concomitant]
     Dosage: 1 DF, UNK
     Dates: start: 20120320, end: 20120320
  7. PHOSPHATE-SANDOZ [Concomitant]
     Dosage: UNK
     Route: 048
     Dates: start: 20120324, end: 20120330
  8. HYDROCORTISONE [Concomitant]
     Dosage: 100 MG, UNK
     Dates: start: 20120320, end: 20120320
  9. PIPERACILLIN AND TAZOBACTAM [Suspect]
     Indication: LOWER RESPIRATORY TRACT INFECTION
     Dosage: 4.5 G, ONCE EVERY 8 HOURS
     Route: 042
     Dates: start: 20120320, end: 20120326
  10. LANSOPRAZOLE [Concomitant]
     Dosage: 30 MG, 1X/DAY
  11. IPRATROPIUM [Concomitant]
     Dosage: 1 DF, 4X/DAY
     Route: 055
     Dates: start: 20120320, end: 20120325
  12. SALBUTAMOL [Concomitant]
     Dosage: 1 DF, 4X/DAY
     Route: 055
     Dates: start: 20120320, end: 20120325
  13. OMEPRAZOLE [Concomitant]
     Dosage: 40 MG, UNK
     Dates: start: 20120320, end: 20120320
  14. LACTULOSE [Concomitant]
     Dosage: UNK
  15. PHENYTOIN [Concomitant]
     Dosage: 150 MG, 1X/DAY
  16. FLUDROCORTISONE [Concomitant]
     Dosage: 50 UG, 1X/DAY
  17. LOPERAMIDE [Concomitant]
     Dosage: UNK
  18. ENOXAPARIN [Concomitant]
     Dosage: 20 MG, 1X/DAY
     Dates: start: 20120320, end: 20120322

REACTIONS (3)
  - PLATELET COUNT DECREASED [None]
  - NEUTROPENIA [None]
  - LEUKOPENIA [None]
